FAERS Safety Report 9975532 (Version 1)
Quarter: 2014Q1

REPORT INFORMATION
  Report Type: Report from Study
  Country: US (occurrence: US)
  Receive Date: 20140306
  Receipt Date: 20140306
  Transmission Date: 20141002
  Serious: No
  Sender: FDA-Public Use
  Company Number: US-ABBVIE-13P-163-1155585-00

PATIENT
  Age: 52 Year
  Sex: Female

DRUGS (1)
  1. HUMIRA [Suspect]
     Indication: PSORIATIC ARTHROPATHY
     Route: 058
     Dates: start: 201305

REACTIONS (9)
  - Rhinalgia [Recovered/Resolved]
  - Nasal disorder [Recovered/Resolved]
  - Nasal oedema [Recovered/Resolved]
  - Inflammation [Recovered/Resolved]
  - Hypoaesthesia oral [Unknown]
  - Injection site oedema [Recovered/Resolved]
  - Erythema [Recovered/Resolved]
  - Injection site erythema [Not Recovered/Not Resolved]
  - Injection site pruritus [Not Recovered/Not Resolved]
